FAERS Safety Report 21518539 (Version 1)
Quarter: 2022Q4

REPORT INFORMATION
  Report Type: Spontaneous
  Country: US (occurrence: None)
  Receive Date: 20221027
  Receipt Date: 20221027
  Transmission Date: 20230113
  Serious: Yes (unspecified)
  Sender: FDA-Public Use
  Company Number: None

PATIENT
  Age: 43 Year
  Sex: Female

DRUGS (1)
  1. TREMFYA [Suspect]
     Active Substance: GUSELKUMAB
     Indication: Psoriatic arthropathy
     Dosage: OTHER FREQUENCY : EVERY 8 WEEKS;?
     Route: 058
     Dates: start: 20220517, end: 20220907

REACTIONS (8)
  - Injection site reaction [None]
  - Injection site pruritus [None]
  - Injection site erythema [None]
  - Injection site swelling [None]
  - Headache [None]
  - Migraine [None]
  - Abdominal discomfort [None]
  - Therapy cessation [None]

NARRATIVE: CASE EVENT DATE: 20220907
